FAERS Safety Report 16482503 (Version 1)
Quarter: 2019Q2

REPORT INFORMATION
  Report Type: Spontaneous
  Country: DE (occurrence: DE)
  Receive Date: 20190627
  Receipt Date: 20190627
  Transmission Date: 20190711
  Serious: Yes (Other)
  Sender: FDA-Public Use
  Company Number: DE-SUN PHARMACEUTICAL INDUSTRIES LTD-2019RR-211945

PATIENT
  Age: 58 Year
  Sex: Female

DRUGS (10)
  1. VOMEX I.V. [Concomitant]
     Indication: VOMITING
     Dosage: ()
     Route: 042
  2. VANCOMYCIN [Concomitant]
     Active Substance: VANCOMYCIN
     Indication: CLOSTRIDIAL INFECTION
     Route: 065
  3. CEFUROXIM [Concomitant]
     Active Substance: CEFUROXIME
     Indication: DIVERTICULITIS
     Dosage: ()
     Route: 042
     Dates: start: 201801
  4. METRONIDAZOL [Concomitant]
     Active Substance: METRONIDAZOLE
     Indication: DIVERTICULITIS
     Dosage: ()
     Route: 048
     Dates: start: 201801
  5. CIPRO [Suspect]
     Active Substance: CIPROFLOXACIN HYDROCHLORIDE
     Indication: LARGE INTESTINE OPERATION
     Dosage: ()
     Route: 065
     Dates: start: 201902
  6. CIPRO [Suspect]
     Active Substance: CIPROFLOXACIN HYDROCHLORIDE
     Indication: LARGE INTESTINE OPERATION
     Route: 042
  7. METRONIDAZOL [Concomitant]
     Active Substance: METRONIDAZOLE
     Dosage: ()
     Route: 042
     Dates: start: 201801
  8. CEFUROXIM [Concomitant]
     Active Substance: CEFUROXIME
     Dosage: ()
     Route: 065
     Dates: start: 201902
  9. CEFUROXIM [Concomitant]
     Active Substance: CEFUROXIME
     Dosage: ()
     Route: 042
  10. CIPRO [Suspect]
     Active Substance: CIPROFLOXACIN HYDROCHLORIDE
     Dosage: ()
     Route: 048
     Dates: start: 201801

REACTIONS (28)
  - Pyrexia [Unknown]
  - Myalgia [Unknown]
  - Haematoma [Unknown]
  - Movement disorder [Unknown]
  - Mental impairment [Unknown]
  - Sleep disorder [Unknown]
  - Disturbance in attention [Unknown]
  - Visual impairment [Unknown]
  - Middle insomnia [Unknown]
  - Sudden onset of sleep [Unknown]
  - Anxiety [Unknown]
  - Musculoskeletal pain [Unknown]
  - Radiculopathy [Recovering/Resolving]
  - Muscular weakness [Unknown]
  - Pain in extremity [Unknown]
  - Tenosynovitis [Unknown]
  - Pseudoradicular syndrome [Recovering/Resolving]
  - Adverse reaction [Recovering/Resolving]
  - Peripheral swelling [Unknown]
  - Headache [Unknown]
  - Burnout syndrome [Unknown]
  - Malaise [Unknown]
  - Myalgia [Unknown]
  - Post-traumatic stress disorder [Unknown]
  - Tendon rupture [Unknown]
  - Bone marrow oedema [Unknown]
  - Impaired work ability [Unknown]
  - Panic attack [Unknown]

NARRATIVE: CASE EVENT DATE: 201802
